FAERS Safety Report 7700630-5 (Version None)
Quarter: 2011Q3

REPORT INFORMATION
  Report Type: 
  Country: None (occurrence: None)
  Receive Date: 20110822
  Receipt Date: 20110822
  Transmission Date: 20111222
  Serious: Yes (Other)
  Sender: FDA-Public Use
  Company Number: None

PATIENT
  Age: 54 Year
  Sex: Female
  Weight: 68.038 kg

DRUGS (1)
  1. DEXAMETHASONE [Suspect]
     Indication: PAIN
     Dosage: 30 ML
     Route: 044
     Dates: start: 20101111, end: 20101217

REACTIONS (8)
  - ACTIVITIES OF DAILY LIVING IMPAIRED [None]
  - DYSPHAGIA [None]
  - INSOMNIA [None]
  - PAIN [None]
  - LOCAL SWELLING [None]
  - ANXIETY [None]
  - FEELING HOT [None]
  - IMPAIRED WORK ABILITY [None]
